FAERS Safety Report 4853548-X (Version None)
Quarter: 2005Q4

REPORT INFORMATION
  Report Type: 
  Country: None (occurrence: None)
  Receive Date: 20051212
  Receipt Date: 20051124
  Transmission Date: 20060501
  Serious: Yes (Other)
  Sender: FDA-Public Use
  Company Number: JP200511002990

PATIENT
  Sex: 0

DRUGS (1)
  1. ZYPREXA [Suspect]
     Dates: start: 20050625

REACTIONS (3)
  - LEUKAEMIA [None]
  - PLATELET COUNT DECREASED [None]
  - WHITE BLOOD CELL COUNT DECREASED [None]
